FAERS Safety Report 11097843 (Version 4)
Quarter: 2015Q4

REPORT INFORMATION
  Report Type: Spontaneous
  Country: US (occurrence: US)
  Receive Date: 20150507
  Receipt Date: 20151013
  Transmission Date: 20160304
  Serious: Yes (Death, Hospitalization, Other)
  Sender: FDA-Public Use
  Company Number: US-PFIZER INC-2015151239

PATIENT
  Age: 52 Year
  Sex: Female
  Weight: 76 kg

DRUGS (3)
  1. PALBOCICLIB [Suspect]
     Active Substance: PALBOCICLIB
     Indication: BREAST CANCER METASTATIC
     Dosage: 125 MG ONCE DAILY 3 WEEKS ON AND 1 WEEK OFF
     Route: 048
     Dates: start: 20150204, end: 20150403
  2. LETROZOLE. [Suspect]
     Active Substance: LETROZOLE
     Indication: BREAST CANCER METASTATIC
     Dosage: 2.5 MG PER DAY
     Dates: start: 20150204, end: 20150403
  3. CEFEPIME [Concomitant]
     Active Substance: CEFEPIME HYDROCHLORIDE
     Dosage: UNK

REACTIONS (21)
  - Pyrexia [Recovering/Resolving]
  - Anaemia [Unknown]
  - Spinal pain [Unknown]
  - Death [Fatal]
  - Tachycardia [Unknown]
  - Breast cancer metastatic [Unknown]
  - Pain [Unknown]
  - Febrile neutropenia [Recovered/Resolved]
  - Gait disturbance [Unknown]
  - Hypophagia [Unknown]
  - Feeling abnormal [Unknown]
  - Neutropenia [Unknown]
  - Fatigue [Unknown]
  - Depression [Unknown]
  - Abdominal pain upper [Unknown]
  - Abdominal tenderness [Unknown]
  - Nausea [Unknown]
  - Constipation [Unknown]
  - Disease progression [Unknown]
  - Dizziness [Unknown]
  - Neck pain [Unknown]

NARRATIVE: CASE EVENT DATE: 20150330
